FAERS Safety Report 19034353 (Version 5)
Quarter: 2022Q1

REPORT INFORMATION
  Report Type: Spontaneous
  Country: US (occurrence: US)
  Receive Date: 20210319
  Receipt Date: 20220119
  Transmission Date: 20220424
  Serious: No
  Sender: FDA-Public Use
  Company Number: NVSC2021US058080

PATIENT
  Sex: Female

DRUGS (2)
  1. VOTRIENT [Suspect]
     Active Substance: PAZOPANIB HYDROCHLORIDE
     Indication: Angiosarcoma
     Dosage: 200 MG, BID
     Route: 048
     Dates: start: 20210227
  2. VOTRIENT [Suspect]
     Active Substance: PAZOPANIB HYDROCHLORIDE
     Dosage: 200 MG, BID
     Route: 048
     Dates: start: 202103

REACTIONS (13)
  - Arthritis [Unknown]
  - Pain [Unknown]
  - Sensitive skin [Unknown]
  - Skin haemorrhage [Unknown]
  - Discomfort [Unknown]
  - Skin ulcer [Unknown]
  - Skin fissures [Unknown]
  - Abdominal pain upper [Unknown]
  - Diarrhoea [Unknown]
  - Insomnia [Unknown]
  - Headache [Unknown]
  - Muscle spasms [Unknown]
  - Incorrect dose administered [Unknown]
